FAERS Safety Report 17216157 (Version 2)
Quarter: 2020Q1

REPORT INFORMATION
  Report Type: Spontaneous
  Country: IT (occurrence: IT)
  Receive Date: 20191230
  Receipt Date: 20200117
  Transmission Date: 20200409
  Serious: Yes (Disabling, Other)
  Sender: FDA-Public Use
  Company Number: IT-BAYER-2019-234586

PATIENT
  Age: 43 Year
  Sex: Female

DRUGS (1)
  1. CIPROXIN 500 MG [Suspect]
     Active Substance: CIPROFLOXACIN
     Indication: COUGH
     Dosage: 500 MG, BID
     Route: 048
     Dates: start: 20190201, end: 20190208

REACTIONS (7)
  - Quality of life decreased [Unknown]
  - Fatigue [Unknown]
  - Muscular weakness [Unknown]
  - Vitamin B6 increased [Not Recovered/Not Resolved]
  - Tendon pain [None]
  - Gait disturbance [Unknown]
  - Tendon disorder [Not Recovered/Not Resolved]

NARRATIVE: CASE EVENT DATE: 2019
